FAERS Safety Report 9948336 (Version 2)
Quarter: 2014Q1

REPORT INFORMATION
  Report Type: Report from Study
  Country: US (occurrence: US)
  Receive Date: 20140303
  Receipt Date: 20140303
  Transmission Date: 20141002
  Serious: No
  Sender: FDA-Public Use
  Company Number: US-ABBVIE-12P-163-0995037-00

PATIENT
  Age: 25 Year
  Sex: Male

DRUGS (5)
  1. HUMIRA [Suspect]
     Indication: CROHN^S DISEASE
     Route: 058
     Dates: start: 20121004, end: 20130222
  2. AMBIEN [Concomitant]
     Indication: INSOMNIA
     Dates: start: 20121106
  3. LIALDA [Concomitant]
     Indication: COLITIS ULCERATIVE
     Route: 048
  4. ATIVAN [Concomitant]
     Indication: PANIC ATTACK
  5. SUBOXONE [Concomitant]
     Indication: PAIN

REACTIONS (13)
  - Somnolence [Not Recovered/Not Resolved]
  - Flank pain [Not Recovered/Not Resolved]
  - Bone pain [Not Recovered/Not Resolved]
  - Asthenia [Not Recovered/Not Resolved]
  - Oropharyngeal pain [Not Recovered/Not Resolved]
  - Depression [Unknown]
  - Fatigue [Recovered/Resolved]
  - Malaise [Recovered/Resolved]
  - Injection site pain [Unknown]
  - Injection site pruritus [Unknown]
  - Nausea [Unknown]
  - Fatigue [Unknown]
  - Drug ineffective [Not Recovered/Not Resolved]
